FAERS Safety Report 13137743 (Version 1)
Quarter: 2017Q1

REPORT INFORMATION
  Report Type: Spontaneous
  Country: US (occurrence: US)
  Receive Date: 20170122
  Receipt Date: 20170122
  Transmission Date: 20170428
  Serious: Yes (Death)
  Sender: FDA-Public Use
  Company Number: None

PATIENT
  Age: 80 Year
  Sex: Male
  Weight: 81.27 kg

DRUGS (25)
  1. FERROUS SULFATE. [Concomitant]
     Active Substance: FERROUS SULFATE
  2. KLOR-CON [Concomitant]
     Active Substance: POTASSIUM CHLORIDE
  3. SYMBICORT [Concomitant]
     Active Substance: BUDESONIDE\FORMOTEROL FUMARATE DIHYDRATE
  4. BUMETANIDE. [Suspect]
     Active Substance: BUMETANIDE
     Indication: OEDEMA
     Route: 042
     Dates: start: 20151130, end: 20151130
  5. STOOL SOFTENER-LAXATIVE [Concomitant]
  6. TIOTROPIUM (SPIVIRA) [Concomitant]
  7. TORSEMIDE. [Concomitant]
     Active Substance: TORSEMIDE
  8. VITAMIN C [Concomitant]
     Active Substance: ASCORBIC ACID
  9. LIPITOR [Concomitant]
     Active Substance: ATORVASTATIN CALCIUM
  10. TRAVOPROST (TRAVATAN Z) [Concomitant]
  11. COUMADIN [Concomitant]
     Active Substance: WARFARIN SODIUM
  12. MULTIVITAMIN [Concomitant]
     Active Substance: VITAMINS
  13. VITAMIN E [Concomitant]
     Active Substance: .ALPHA.-TOCOPHEROL
  14. PROTONIX [Concomitant]
     Active Substance: PANTOPRAZOLE SODIUM
  15. BIOTIN [Concomitant]
     Active Substance: BIOTIN
  16. PLAVIX [Concomitant]
     Active Substance: CLOPIDOGREL BISULFATE
  17. CO-ENZYME Q-10 [Concomitant]
  18. COQ10 [Concomitant]
     Active Substance: UBIDECARENONE
  19. MAGNESIUM [Concomitant]
     Active Substance: MAGNESIUM
  20. VITAMIN B [Concomitant]
     Active Substance: VITAMIN B
  21. ASPIRIN. [Concomitant]
     Active Substance: ASPIRIN
  22. ALBUTEROL. [Concomitant]
     Active Substance: ALBUTEROL
  23. HOME OXYGEN [Concomitant]
  24. POTASSIUM [Concomitant]
     Active Substance: POTASSIUM
  25. VITAMIN A [Concomitant]
     Active Substance: VITAMIN A

REACTIONS (1)
  - Death [None]

NARRATIVE: CASE EVENT DATE: 20151130
